FAERS Safety Report 19595662 (Version 2)
Quarter: 2021Q3

REPORT INFORMATION
  Report Type: Spontaneous
  Country: US (occurrence: US)
  Receive Date: 20210722
  Receipt Date: 20210728
  Transmission Date: 20211014
  Serious: Yes (Hospitalization)
  Sender: FDA-Public Use
  Company Number: US-TEVA-2021-US-1933563

PATIENT
  Age: 35 Year
  Sex: Female

DRUGS (22)
  1. AMITRIPTYLINE [Suspect]
     Active Substance: AMITRIPTYLINE
     Indication: DEPRESSION
     Route: 065
  2. FLUOXETINE [Suspect]
     Active Substance: FLUOXETINE HYDROCHLORIDE
     Indication: DEPRESSION
     Route: 065
  3. LURASIDONE [Suspect]
     Active Substance: LURASIDONE
     Indication: DEPRESSION
     Dosage: 20MG
     Route: 065
  4. ETHINYL ESTRADIOL [Suspect]
     Active Substance: ETHINYL ESTRADIOL
     Indication: PERSISTENT GENITAL AROUSAL DISORDER
     Dosage: RING FORMULATION
     Route: 067
  5. TRAZODONE [Suspect]
     Active Substance: TRAZODONE HYDROCHLORIDE
     Indication: DEPRESSION
     Route: 065
  6. ETONORGESTREL [Suspect]
     Active Substance: ETONOGESTREL
     Indication: PERSISTENT GENITAL AROUSAL DISORDER
     Dosage: RING FORMULATION
     Route: 067
  7. QUETIAPINE. [Suspect]
     Active Substance: QUETIAPINE
     Indication: DEPRESSION
     Route: 065
  8. VENLAFAXINE [Suspect]
     Active Substance: VENLAFAXINE HYDROCHLORIDE
     Indication: DEPRESSION
     Route: 065
  9. LURASIDONE [Suspect]
     Active Substance: LURASIDONE
     Dosage: 40MG
     Route: 065
  10. ESTROGEN [Suspect]
     Active Substance: ESTROGENS
     Indication: PERSISTENT GENITAL AROUSAL DISORDER
     Route: 061
  11. LEVOMILNACIPRAN [Suspect]
     Active Substance: LEVOMILNACIPRAN
     Indication: ANXIETY
     Route: 065
     Dates: start: 2018
  12. MIRABEGRON [Suspect]
     Active Substance: MIRABEGRON
     Indication: MICTURITION URGENCY
     Route: 065
     Dates: start: 201807
  13. TRAMADOL. [Concomitant]
     Active Substance: TRAMADOL
     Indication: PERSISTENT GENITAL AROUSAL DISORDER
     Route: 065
  14. ALPRAZOLAM. [Suspect]
     Active Substance: ALPRAZOLAM
     Indication: ANXIETY
     Route: 065
  15. BUPROPION. [Suspect]
     Active Substance: BUPROPION
     Indication: DEPRESSION
     Route: 065
  16. PRAMIPEXOLE. [Suspect]
     Active Substance: PRAMIPEXOLE
     Dosage: 0.125MG TWICE A DAY AND 0.250MG AT NIGHT
     Route: 065
     Dates: start: 2020
  17. DESVENLAFAXINE. [Suspect]
     Active Substance: DESVENLAFAXINE
     Indication: DEPRESSION
     Route: 065
  18. PRAMIPEXOLE. [Suspect]
     Active Substance: PRAMIPEXOLE
     Indication: PERSISTENT GENITAL AROUSAL DISORDER
     Dosage: .375 MILLIGRAM DAILY;
     Route: 065
     Dates: start: 201911
  19. ZOLPIDEM [Suspect]
     Active Substance: ZOLPIDEM TARTRATE
     Indication: PERSISTENT GENITAL AROUSAL DISORDER
     Route: 065
     Dates: start: 201806
  20. VILAZODONE [Suspect]
     Active Substance: VILAZODONE
     Indication: DEPRESSION
     Route: 065
  21. VARENICLINE [Suspect]
     Active Substance: VARENICLINE
     Indication: PERSISTENT GENITAL AROUSAL DISORDER
     Route: 065
     Dates: start: 201806
  22. SERTRALINE [Concomitant]
     Active Substance: SERTRALINE HYDROCHLORIDE
     Indication: ANXIETY
     Route: 065
     Dates: start: 201806

REACTIONS (4)
  - Persistent genital arousal disorder [Recovering/Resolving]
  - Paradoxical drug reaction [Recovering/Resolving]
  - Drug ineffective [Unknown]
  - Withdrawal syndrome [Recovering/Resolving]
